FAERS Safety Report 8002867-7 (Version None)
Quarter: 2011Q4

REPORT INFORMATION
  Report Type: 
  Country: None (occurrence: None)
  Receive Date: 20111222
  Receipt Date: 20110107
  Transmission Date: 20120403
  Serious: No
  Sender: FDA-Public Use
  Company Number: US-GLAXOSMITHKLINE-A0904213A

PATIENT
  Age: 50 Year
  Sex: Male
  Weight: 63.4 kg

DRUGS (4)
  1. AVODART [Suspect]
     Indication: BENIGN PROSTATIC HYPERPLASIA
     Dosage: .5MG PER DAY
     Route: 048
     Dates: start: 20090102, end: 20110201
  2. GLUCOSAMINE CHONDROITIN [Concomitant]
  3. LUNESTA [Concomitant]
     Indication: INSOMNIA
     Dosage: 3MG AS REQUIRED
     Route: 048
  4. COENZYME Q10 [Concomitant]

REACTIONS (4)
  - MYALGIA [None]
  - BACK PAIN [None]
  - MUSCULOSKELETAL PAIN [None]
  - ADVERSE EVENT [None]
